FAERS Safety Report 6273560-6 (Version None)
Quarter: 2009Q3

REPORT INFORMATION
  Report Type: 
  Country: None (occurrence: None)
  Receive Date: 20090720
  Receipt Date: 20090708
  Transmission Date: 20100115
  Serious: No
  Sender: FDA-Public Use
  Company Number: US-JNJFOC-20080801976

PATIENT
  Sex: Male
  Weight: 69 kg

DRUGS (14)
  1. GOLIMUMAB [Suspect]
     Route: 042
  2. GOLIMUMAB [Suspect]
     Route: 042
  3. GOLIMUMAB [Suspect]
     Route: 042
  4. GOLIMUMAB [Suspect]
     Route: 042
  5. GOLIMUMAB [Suspect]
     Route: 042
  6. GOLIMUMAB [Suspect]
     Indication: RHEUMATOID ARTHRITIS
     Route: 042
  7. METHOTREXATE [Suspect]
     Indication: RHEUMATOID ARTHRITIS
     Route: 048
  8. PLACEBO [Suspect]
     Route: 048
  9. PLACEBO [Suspect]
     Indication: RHEUMATOID ARTHRITIS
     Route: 048
  10. ADALIMUMAB [Suspect]
     Indication: RHEUMATOID ARTHRITIS
     Route: 058
  11. FOLIC ACID [Concomitant]
     Indication: RHEUMATOID ARTHRITIS
     Route: 048
  12. NAPROXEN [Concomitant]
     Indication: RHEUMATOID ARTHRITIS
     Route: 048
  13. TEMAZEPAM [Concomitant]
     Route: 048
  14. ZANTAC [Concomitant]
     Route: 048

REACTIONS (1)
  - MYCOBACTERIUM KANSASII INFECTION [None]
